FAERS Safety Report 18157621 (Version 1)
Quarter: 2020Q3

REPORT INFORMATION
  Report Type: Spontaneous
  Country: SE (occurrence: SE)
  Receive Date: 20200817
  Receipt Date: 20200817
  Transmission Date: 20201103
  Serious: Yes (Other)
  Sender: FDA-Public Use
  Company Number: SE-TEVA-2020-SE-1814070

PATIENT
  Age: 62 Year
  Sex: Female

DRUGS (4)
  1. CANDESARTAN SANDOZ [Concomitant]
     Active Substance: CANDESARTAN
     Dates: start: 201906
  2. ATORVASTATIN TEVA 80 MG FILMDRAGERAD TABLETT [Suspect]
     Active Substance: ATORVASTATIN
     Indication: BLOOD CHOLESTEROL INCREASED
     Dosage: 80 MG
     Dates: start: 201906, end: 20200722
  3. ASCORBIC ACID. [Concomitant]
     Active Substance: ASCORBIC ACID
  4. TROMBYL [Concomitant]
     Active Substance: ASPIRIN
     Dates: start: 201906

REACTIONS (6)
  - Arthralgia [Recovering/Resolving]
  - Depression [Recovering/Resolving]
  - Dyspnoea [Recovering/Resolving]
  - Gingival bleeding [Recovering/Resolving]
  - Weight increased [Recovering/Resolving]
  - Epistaxis [Recovering/Resolving]

NARRATIVE: CASE EVENT DATE: 201912
